FAERS Safety Report 4593995-7 (Version None)
Quarter: 2005Q1

REPORT INFORMATION
  Report Type: 
  Country: None (occurrence: None)
  Receive Date: 20050301
  Receipt Date: 20041122
  Transmission Date: 20050727
  Serious: Yes (Life-Threatening, Hospitalization, Disabling)
  Sender: FDA-Public Use
  Company Number: US-MERCK-0411USA03598

PATIENT
  Age: 75 Year
  Sex: Female
  Weight: 88 kg

DRUGS (14)
  1. VIOXX [Suspect]
     Indication: OSTEOARTHRITIS
     Route: 048
     Dates: end: 20031001
  2. VIOXX [Suspect]
     Indication: RHEUMATOID ARTHRITIS
     Route: 048
     Dates: end: 20031001
  3. PREMARIN [Concomitant]
     Indication: HORMONE REPLACEMENT THERAPY
     Route: 048
  4. CELEXA [Concomitant]
     Indication: DEPRESSION
     Route: 048
  5. LASIX [Concomitant]
     Indication: CORONARY ARTERY DISEASE
     Route: 048
  6. LASIX [Concomitant]
     Indication: HYPERTENSION
     Route: 048
  7. LOTENSIN [Concomitant]
     Indication: CORONARY ARTERY DISEASE
     Route: 048
  8. LOTENSIN [Concomitant]
     Indication: HYPERTENSION
     Route: 048
  9. NORVASC [Concomitant]
     Indication: CORONARY ARTERY DISEASE
     Route: 048
  10. NORVASC [Concomitant]
     Indication: HYPERTENSION
     Route: 048
  11. XANAX [Concomitant]
     Route: 048
  12. VICOPROFEN [Concomitant]
     Route: 065
  13. QUININE SULFATE [Concomitant]
     Route: 065
  14. ASPIRIN [Concomitant]
     Route: 065

REACTIONS (17)
  - ANAEMIA POSTOPERATIVE [None]
  - ANXIETY [None]
  - ARTHRALGIA [None]
  - ARTHROPATHY [None]
  - BRONCHITIS [None]
  - CATARACT [None]
  - CORONARY ARTERY ATHEROSCLEROSIS [None]
  - DEHYDRATION [None]
  - GASTRIC ULCER HAEMORRHAGE [None]
  - HAEMATEMESIS [None]
  - JOINT EFFUSION [None]
  - MYALGIA [None]
  - MYOSITIS [None]
  - NECK PAIN [None]
  - OEDEMA PERIPHERAL [None]
  - OSTEOARTHRITIS [None]
  - ROTATOR CUFF SYNDROME [None]
